FAERS Safety Report 5744443-2 (Version None)
Quarter: 2008Q2

REPORT INFORMATION
  Report Type: 
  Country: None (occurrence: None)
  Receive Date: 20080520
  Receipt Date: 20080509
  Transmission Date: 20081010
  Serious: Yes (Other)
  Sender: FDA-Public Use
  Company Number: GR-JNJFOC-20080501665

PATIENT
  Sex: Female

DRUGS (1)
  1. TOPAMAC [Suspect]
     Indication: MIGRAINE
     Route: 048

REACTIONS (7)
  - ANOREXIA [None]
  - ASTHENIA [None]
  - FATIGUE [None]
  - FEELING COLD [None]
  - PERIPHERAL COLDNESS [None]
  - STRESS [None]
  - WEIGHT DECREASED [None]
